FAERS Safety Report 25722208 (Version 2)
Quarter: 2025Q3

REPORT INFORMATION
  Report Type: Report from Study
  Country: US (occurrence: US)
  Receive Date: 20250825
  Receipt Date: 20250915
  Transmission Date: 20251021
  Serious: Yes (Other)
  Sender: BAUSCH AND LOMB
  Company Number: US-BAUSCH-BH-2025-014318

PATIENT
  Age: 73 Year
  Sex: Female

DRUGS (1)
  1. ATIVAN [Suspect]
     Active Substance: LORAZEPAM
     Indication: Anxiety
     Dosage: SOMETIMES SHE TAKES HALF TABLET OR TWO TABLETS AS PER HER CONDITION
     Route: 048

REACTIONS (8)
  - Waldenstrom^s macroglobulinaemia [Not Recovered/Not Resolved]
  - Bing-Neel syndrome [Not Recovered/Not Resolved]
  - Blood pressure increased [Not Recovered/Not Resolved]
  - Infection [Recovered/Resolved]
  - Chalazion [Recovered/Resolved]
  - Urinary tract infection [Unknown]
  - Fatigue [Not Recovered/Not Resolved]
  - Intentional product use issue [Unknown]

NARRATIVE: CASE EVENT DATE: 20250817
